FAERS Safety Report 14575650 (Version 3)
Quarter: 2018Q2

REPORT INFORMATION
  Report Type: Spontaneous
  Country: ES (occurrence: ES)
  Receive Date: 20180227
  Receipt Date: 20180406
  Transmission Date: 20180711
  Serious: Yes (Other)
  Sender: FDA-Public Use
  Company Number: ES-SUN PHARMACEUTICAL INDUSTRIES LTD-2018R1-160502

PATIENT
  Age: 60 Year
  Sex: Female

DRUGS (1)
  1. IMATINIB [Suspect]
     Active Substance: IMATINIB
     Indication: CHRONIC MYELOID LEUKAEMIA
     Dosage: 400 MG
     Route: 065

REACTIONS (1)
  - Pseudoporphyria [Recovering/Resolving]
